FAERS Safety Report 16473570 (Version 1)
Quarter: 2019Q2

REPORT INFORMATION
  Report Type: Spontaneous
  Country: US (occurrence: US)
  Receive Date: 20190515
  Receipt Date: 20190515
  Transmission Date: 20190711
  Serious: Yes (Life-Threatening)
  Sender: FDA-Public Use
  Company Number: None

PATIENT
  Age: 37 Year
  Sex: Female
  Weight: 121 kg

DRUGS (2)
  1. GIAPREZA [Suspect]
     Active Substance: ANGIOTENSIN II
     Indication: SEPTIC SHOCK
     Dosage: ?          OTHER DOSE:10 NG/KG/MIN;OTHER FREQUENCY:CONTINUOUS;?
     Route: 042
     Dates: start: 20190429, end: 20190430
  2. 2.5MG IN 250ML 0.9% SODIUM CHLORIDE [Suspect]
     Active Substance: SODIUM CHLORIDE

REACTIONS (2)
  - Peripheral ischaemia [None]
  - Peripheral artery thrombosis [None]

NARRATIVE: CASE EVENT DATE: 20190430
